FAERS Safety Report 8231107-9 (Version None)
Quarter: 2012Q1

REPORT INFORMATION
  Report Type: 
  Country: None (occurrence: None)
  Receive Date: 20120322
  Receipt Date: 20120322
  Transmission Date: 20120608
  Serious: Yes (Life-Threatening, Hospitalization)
  Sender: FDA-Public Use
  Company Number: None

PATIENT
  Age: 36 Year
  Sex: Female
  Weight: 61.688 kg

DRUGS (1)
  1. PARAGARD T 380A [Suspect]
     Indication: INTRA-UTERINE CONTRACEPTIVE DEVICE
     Route: 015

REACTIONS (3)
  - INFECTIOUS PERITONITIS [None]
  - STREPTOCOCCAL INFECTION [None]
  - MEDICAL DEVICE COMPLICATION [None]
